FAERS Safety Report 10559776 (Version 1)
Quarter: 2014Q4

REPORT INFORMATION
  Report Type: Spontaneous
  Country: US (occurrence: US)
  Receive Date: 20141103
  Receipt Date: 20141103
  Transmission Date: 20150529
  Serious: No
  Sender: FDA-Public Use
  Company Number: US-PFIZER INC-2014301830

PATIENT
  Sex: Female

DRUGS (2)
  1. SUTENT [Suspect]
     Active Substance: SUNITINIB MALATE
     Indication: BREAST CANCER
     Dosage: 50 MG, DAILY
  2. ADVIL [Concomitant]
     Active Substance: IBUPROFEN
     Dosage: UNK

REACTIONS (7)
  - Fatigue [Unknown]
  - Product use issue [Unknown]
  - Dry skin [Unknown]
  - Breast pain [Unknown]
  - Dysgeusia [Unknown]
  - Oral pain [Unknown]
  - Chromaturia [Unknown]
